FAERS Safety Report 24454763 (Version 2)
Quarter: 2024Q4

REPORT INFORMATION
  Report Type: Spontaneous
  Country: KR (occurrence: KR)
  Receive Date: 20241017
  Receipt Date: 20241018
  Transmission Date: 20250115
  Serious: No
  Sender: ROCHE
  Company Number: KR-ROCHE-3474289

PATIENT
  Age: 7 Decade
  Sex: Male

DRUGS (22)
  1. RITUXIMAB [Suspect]
     Active Substance: RITUXIMAB
     Indication: Renal vasculitis
     Route: 041
  2. METHYLPREDNISOLONE [Suspect]
     Active Substance: METHYLPREDNISOLONE
     Indication: Renal vasculitis
     Route: 065
  3. METHYLPREDNISOLONE [Suspect]
     Active Substance: METHYLPREDNISOLONE
     Route: 065
  4. PREDNISOLONE [Suspect]
     Active Substance: PREDNISOLONE
     Indication: Renal vasculitis
     Dosage: TAPERED EVERY 2 WEEKS
     Route: 048
  5. PREDNISOLONE [Suspect]
     Active Substance: PREDNISOLONE
     Route: 048
  6. IRBESARTAN [Concomitant]
     Active Substance: IRBESARTAN
  7. METFORMIN [Concomitant]
     Active Substance: METFORMIN HYDROCHLORIDE
  8. ALOGLIPTIN [Concomitant]
     Active Substance: ALOGLIPTIN
  9. PIOGLITAZONE [Concomitant]
     Active Substance: PIOGLITAZONE
  10. ATORVASTATIN [Concomitant]
     Active Substance: ATORVASTATIN
  11. CHADOX1-S VACCINE [Concomitant]
     Dosage: 1ST DOSE
     Dates: start: 20210610
  12. CHADOX1-S VACCINE [Concomitant]
     Dosage: 2ND DOSE
     Dates: start: 20210826
  13. ELASOMERAN [Concomitant]
     Active Substance: ELASOMERAN
     Dates: start: 20220212
  14. TOZINAMERAN [Concomitant]
     Active Substance: TOZINAMERAN
     Dates: start: 20220329
  15. REMDESIVIR [Concomitant]
     Active Substance: REMDESIVIR
  16. REMDESIVIR [Concomitant]
     Active Substance: REMDESIVIR
  17. PIPERACILLIN [Concomitant]
     Active Substance: PIPERACILLIN
  18. TAZOBACTAM [Concomitant]
     Active Substance: TAZOBACTAM
  19. ISONIAZID [Concomitant]
     Active Substance: ISONIAZID
  20. RIFAMPIN [Concomitant]
     Active Substance: RIFAMPIN
  21. MOXIFLOXACIN [Concomitant]
     Active Substance: MOXIFLOXACIN
  22. PYRAZINAMIDE [Concomitant]
     Active Substance: PYRAZINAMIDE

REACTIONS (3)
  - Staphylococcal infection [Unknown]
  - Klebsiella infection [Unknown]
  - Disease progression [Unknown]
